FAERS Safety Report 5015360-0 (Version None)
Quarter: 2006Q2

REPORT INFORMATION
  Report Type: 
  Country: None (occurrence: None)
  Receive Date: 20060601
  Receipt Date: 20060523
  Transmission Date: 20061013
  Serious: Yes (Death, Life-Threatening, Hospitalization)
  Sender: FDA-Public Use
  Company Number: FR-JNJFOC-20060505206

PATIENT
  Age: 78 Year
  Sex: Female
  Weight: 69 kg

DRUGS (7)
  1. DURAGESIC-100 [Suspect]
     Route: 062
  2. MORPHINE SULFATE [Suspect]
     Indication: ABDOMINAL PAIN
     Route: 065
  3. SOTALOL HCL [Concomitant]
     Indication: HYPERTENSION
     Route: 065
  4. FUROSEMIDE [Concomitant]
     Indication: HYPERTENSION
     Route: 065
  5. PREVISCAN [Concomitant]
     Route: 065
  6. SOLUPRED [Concomitant]
     Route: 065
  7. MOPRAL [Concomitant]
     Route: 065

REACTIONS (7)
  - CONSTIPATION [None]
  - DRUG TOXICITY [None]
  - DYSPNOEA [None]
  - MIOSIS [None]
  - RESPIRATORY FAILURE [None]
  - SOMNOLENCE [None]
  - URINARY RETENTION [None]
